FAERS Safety Report 20818614 (Version 9)
Quarter: 2022Q3

REPORT INFORMATION
  Report Type: Spontaneous
  Country: CA (occurrence: CA)
  Receive Date: 20220512
  Receipt Date: 20220815
  Transmission Date: 20221027
  Serious: Yes (Other)
  Sender: FDA-Public Use
  Company Number: CA-GLAXOSMITHKLINE-CA2022055666

PATIENT

DRUGS (8)
  1. ZEJULA [Suspect]
     Active Substance: NIRAPARIB
     Indication: Ovarian epithelial cancer
     Dosage: 200 MG, QD
     Route: 048
     Dates: start: 20220321
  2. ZEJULA [Suspect]
     Active Substance: NIRAPARIB
     Indication: Fallopian tube cancer
     Dosage: 200 MG, QD
     Route: 048
     Dates: start: 20220415, end: 20220504
  3. ZEJULA [Suspect]
     Active Substance: NIRAPARIB
     Indication: Malignant peritoneal neoplasm
     Dosage: 200 MG, QD
     Route: 048
     Dates: start: 20220511
  4. ZEJULA [Suspect]
     Active Substance: NIRAPARIB
     Dosage: 100 MG, QD
     Route: 048
     Dates: start: 20220520
  5. WELLBUTRIN XL [Concomitant]
     Active Substance: BUPROPION HYDROCHLORIDE
     Indication: Product used for unknown indication
     Dosage: UNK
  6. COVID 19 VACCINE [Concomitant]
     Indication: COVID-19 prophylaxis
     Dosage: UNK (1ST DOSE)
  7. COVID 19 VACCINE [Concomitant]
     Dosage: UNK (2ND DOSE))
  8. COVID 19 VACCINE [Concomitant]
     Dosage: UNK(3RD DOSE))

REACTIONS (26)
  - Immunosuppression [Unknown]
  - Fatigue [Not Recovered/Not Resolved]
  - Full blood count abnormal [Unknown]
  - Urine output increased [Not Recovered/Not Resolved]
  - Weight decreased [Unknown]
  - Decreased appetite [Unknown]
  - Coronavirus infection [Recovered/Resolved]
  - Asymptomatic COVID-19 [Recovered/Resolved]
  - Exposure to SARS-CoV-2 [Recovered/Resolved]
  - Red blood cell count decreased [Unknown]
  - Platelet count decreased [Unknown]
  - Hypersensitivity [Unknown]
  - Eye pruritus [Unknown]
  - Lacrimation increased [Unknown]
  - Rhinorrhoea [Unknown]
  - Aphonia [Recovering/Resolving]
  - Disease recurrence [Unknown]
  - Dust allergy [Unknown]
  - Cough [Unknown]
  - Vomiting [Unknown]
  - Amnesia [Unknown]
  - Blood pressure abnormal [Not Recovered/Not Resolved]
  - Weight increased [Unknown]
  - Paraesthesia [Unknown]
  - Skin discolouration [Unknown]
  - Sciatica [Unknown]

NARRATIVE: CASE EVENT DATE: 20220301
